FAERS Safety Report 9908243 (Version 1)
Quarter: 2014Q1

REPORT INFORMATION
  Report Type: Spontaneous
  Country: US (occurrence: None)
  Receive Date: 20140212
  Receipt Date: 20140212
  Transmission Date: 20141002
  Serious: Yes (Life-Threatening, Hospitalization)
  Sender: FDA-Public Use
  Company Number: None

PATIENT
  Age: 70 Year
  Sex: Male
  Weight: 64.5 kg

DRUGS (17)
  1. ALIMTA [Suspect]
     Indication: NON-SMALL CELL LUNG CANCER METASTATIC
     Route: 042
     Dates: start: 20130523, end: 20131205
  2. ALIMTA [Suspect]
     Indication: METASTASES TO CENTRAL NERVOUS SYSTEM
     Route: 042
     Dates: start: 20130523, end: 20131205
  3. ASPIRIN [Concomitant]
  4. DEXAMETHASONE [Concomitant]
  5. DILANTIN [Concomitant]
  6. FOLIC ACID [Concomitant]
  7. KYTRIL [Concomitant]
  8. KEPPRA [Concomitant]
  9. MEGACE [Concomitant]
  10. NYSTATIN [Concomitant]
  11. PEMETREXED [Concomitant]
  12. PEPCID [Concomitant]
  13. PROCHLORPERAZINE [Concomitant]
  14. SIMVASTATIN [Concomitant]
  15. CYANOCOBALAMIN [Concomitant]
  16. ZOFRAN ODT [Suspect]
  17. CARBOPLATIN [Concomitant]

REACTIONS (1)
  - Hepatitis [None]
